FAERS Safety Report 5509079-7 (Version None)
Quarter: 2007Q4

REPORT INFORMATION
  Report Type: 
  Country: None (occurrence: None)
  Receive Date: 20071026
  Receipt Date: 20070703
  Transmission Date: 20080405
  Serious: Yes (Death, Life-Threatening, Hospitalization)
  Sender: FDA-Public Use
  Company Number: CLOF-10586

PATIENT
  Age: 63 Year
  Sex: Male

DRUGS (13)
  1. CLOFARABINE. MFR: GENZYME [Suspect]
     Indication: ACUTE MYELOID LEUKAEMIA
     Dosage: 47 MG QD X 5 IV
     Route: 042
     Dates: start: 20070628, end: 20070702
  2. IDARUBICIN HCL [Suspect]
     Indication: ACUTE MYELOID LEUKAEMIA
     Dosage: 12 MG QD X 3 IV
     Route: 042
     Dates: start: 20070601
  3. CYTARABINE [Suspect]
     Indication: ACUTE MYELOID LEUKAEMIA
     Dosage: 1550 MG QD X 5 IV
     Route: 042
     Dates: start: 20070628, end: 20070702
  4. PRED FORTE [Concomitant]
  5. XOPENEX [Concomitant]
  6. ATROVENT [Concomitant]
  7. SOLU-MEDROL [Concomitant]
  8. ZOSYN [Concomitant]
  9. TIGECYCLINE [Concomitant]
  10. VORICONAZOLE [Concomitant]
  11. ACYCLOVIR [Concomitant]
  12. FLAGYL [Concomitant]
  13. ALLOPURINOL [Concomitant]

REACTIONS (7)
  - BLOOD BILIRUBIN INCREASED [None]
  - PERIORBITAL HAEMATOMA [None]
  - PNEUMONIA [None]
  - RENAL FAILURE ACUTE [None]
  - RESPIRATORY FAILURE [None]
  - SEPSIS [None]
  - TRAUMATIC INTRACRANIAL HAEMORRHAGE [None]
